FAERS Safety Report 19990614 (Version 1)
Quarter: 2021Q4

REPORT INFORMATION
  Report Type: Spontaneous
  Country: US (occurrence: US)
  Receive Date: 20211024
  Receipt Date: 20211024
  Transmission Date: 20220303
  Serious: No
  Sender: FDA-Public Use
  Company Number: None

PATIENT
  Age: 38 Year
  Sex: Female
  Weight: 67.5 kg

DRUGS (1)
  1. ARTNATURALS HAND SANITIZER [Suspect]
     Active Substance: ALCOHOL
     Indication: COVID-19 prophylaxis
     Dosage: ?          QUANTITY:2 OUNCE(S);
     Route: 061
     Dates: start: 20211023, end: 20211023

REACTIONS (5)
  - Suspected product quality issue [None]
  - Skin burning sensation [None]
  - Paraesthesia [None]
  - Pain in extremity [None]
  - Recalled product [None]

NARRATIVE: CASE EVENT DATE: 20211023
